FAERS Safety Report 7472624-9 (Version None)
Quarter: 2011Q2

REPORT INFORMATION
  Report Type: 
  Country: None (occurrence: None)
  Receive Date: 20110511
  Receipt Date: 20110502
  Transmission Date: 20111010
  Serious: Yes (Hospitalization)
  Sender: FDA-Public Use
  Company Number: US-BRISTOL-MYERS SQUIBB COMPANY-15710262

PATIENT
  Age: 57 Year
  Sex: Female

DRUGS (5)
  1. HEPARIN [Suspect]
     Indication: PULMONARY EMBOLISM
  2. FONDAPARINUX SODIUM [Suspect]
  3. HEPARIN SODIUM [Suspect]
     Indication: PULMONARY EMBOLISM
  4. WARFARIN SODIUM [Suspect]
  5. ARGATROBAN [Suspect]
     Route: 042

REACTIONS (2)
  - HEPARIN-INDUCED THROMBOCYTOPENIA [None]
  - ISCHAEMIC STROKE [None]
